FAERS Safety Report 9869193 (Version 2)
Quarter: 2014Q1

REPORT INFORMATION
  Report Type: Report from Study
  Country: AU (occurrence: AU)
  Receive Date: 20140205
  Receipt Date: 20140206
  Transmission Date: 20141002
  Serious: Yes (Other)
  Sender: FDA-Public Use
  Company Number: AU-ROCHE-1344675

PATIENT
  Sex: Female
  Weight: 62 kg

DRUGS (1)
  1. AVASTIN [Suspect]
     Indication: GLIOMA
     Dosage: 100MG/4ML, 400MG/16/ML
     Route: 065
     Dates: end: 20140205

REACTIONS (1)
  - Disease progression [Unknown]
